FAERS Safety Report 4440291-4 (Version None)
Quarter: 2004Q3

REPORT INFORMATION
  Report Type: 
  Country: None (occurrence: None)
  Receive Date: 20040831
  Receipt Date: 20040604
  Transmission Date: 20050211
  Serious: No
  Sender: FDA-Public Use
  Company Number: 702045

PATIENT
  Age: 87 Year
  Sex: Male

DRUGS (3)
  1. AMEVIVE [Suspect]
     Indication: PSORIASIS
     Dates: start: 20020101
  2. AMEVIVE [Suspect]
     Indication: PSORIASIS
  3. MEDICATIONS (NOS) [Concomitant]

REACTIONS (4)
  - PRURITUS [None]
  - RASH [None]
  - SCAB [None]
  - SECRETION DISCHARGE [None]
